FAERS Safety Report 5965757-7 (Version None)
Quarter: 2008Q4

REPORT INFORMATION
  Report Type: 
  Country: None (occurrence: None)
  Receive Date: 20081125
  Receipt Date: 20081117
  Transmission Date: 20090506
  Serious: Yes (Other)
  Sender: FDA-Public Use
  Company Number: D0059469A

PATIENT
  Sex: Female

DRUGS (2)
  1. VIANI [Suspect]
     Indication: ASTHMA
     Dosage: 600MCG TWICE PER DAY
     Route: 055
  2. SYMBICORT [Concomitant]
     Indication: ASTHMA
     Dosage: 229MCG THREE TIMES PER DAY
     Route: 055

REACTIONS (4)
  - ASTHMA [None]
  - DYSPNOEA [None]
  - MUSCLE SPASMS [None]
  - OVERDOSE [None]
